FAERS Safety Report 5025527-3 (Version None)
Quarter: 2006Q2

REPORT INFORMATION
  Report Type: 
  Country: None (occurrence: None)
  Receive Date: 20060608
  Receipt Date: 20060531
  Transmission Date: 20061013
  Serious: Yes (Death, Hospitalization)
  Sender: FDA-Public Use
  Company Number: FR200606000018

PATIENT
  Age: 65 Year
  Sex: Male

DRUGS (4)
  1. ALIMTA [Suspect]
     Indication: NON-SMALL CELL LUNG CANCER
     Dosage: INTRAVENOUS
     Route: 042
  2. FOLIC ACID [Concomitant]
  3. CYANOCOBALAMIN [Concomitant]
  4. CORTICOSTEROID NOS (CORTICOSTEROID NOS) [Concomitant]

REACTIONS (3)
  - DIARRHOEA [None]
  - FEBRILE NEUTROPENIA [None]
  - SEPTIC SHOCK [None]
